FAERS Safety Report 18498538 (Version 5)
Quarter: 2025Q2

REPORT INFORMATION
  Report Type: Report from Study
  Country: FR (occurrence: FR)
  Receive Date: 20201112
  Receipt Date: 20250624
  Transmission Date: 20250717
  Serious: Yes (Hospitalization)
  Sender: TAKEDA
  Company Number: FR-TAKEDA-2020TUS046406

PATIENT
  Age: 66 Year
  Sex: Female

DRUGS (19)
  1. TEDUGLUTIDE [Suspect]
     Active Substance: TEDUGLUTIDE
     Indication: Short-bowel syndrome
     Dosage: 2 MILLIGRAM, QD
     Dates: start: 20180527, end: 20200205
  2. TEDUGLUTIDE [Suspect]
     Active Substance: TEDUGLUTIDE
  3. TEDUGLUTIDE [Suspect]
     Active Substance: TEDUGLUTIDE
  4. TEDUGLUTIDE [Suspect]
     Active Substance: TEDUGLUTIDE
  5. IMOVANE [Concomitant]
     Active Substance: ZOPICLONE
     Indication: Insomnia
     Dosage: 3.75 GRAM, QD
  6. KAYEXALATE [Concomitant]
     Active Substance: SODIUM POLYSTYRENE SULFONATE
     Indication: Electrolyte imbalance
     Dosage: UNK UNK, QD
  7. PREGABALIN [Concomitant]
     Active Substance: PREGABALIN
     Indication: Pain prophylaxis
     Dosage: 75 MILLIGRAM, BID
  8. OXYCODONE HYDROCHLORIDE [Concomitant]
     Active Substance: OXYCODONE HYDROCHLORIDE
     Indication: Pain
  9. FENTANYL [Concomitant]
     Active Substance: FENTANYL
     Indication: Pain
     Dosage: UNK UNK, QD
     Dates: end: 202012
  10. VANCOMYCIN [Concomitant]
     Active Substance: VANCOMYCIN
     Indication: Device related sepsis
     Dosage: UNK UNK, QD
     Dates: start: 20201203, end: 20201208
  11. PIPERACILLIN SODIUM\TAZOBACTAM SODIUM [Concomitant]
     Active Substance: PIPERACILLIN SODIUM\TAZOBACTAM SODIUM
     Indication: Device related sepsis
     Dosage: UNK UNK, QD
     Dates: start: 20201203, end: 20201208
  12. KARDEGIC [Concomitant]
     Active Substance: ASPIRIN DL-LYSINE
     Indication: Cardiovascular event prophylaxis
     Dosage: 75 MILLIGRAM, QD
  13. ALPRAZOLAM [Concomitant]
     Active Substance: ALPRAZOLAM
     Indication: Anxiety
     Dosage: 0.25 MILLIGRAM, TID
  14. LANSOPRAZOLE [Concomitant]
     Active Substance: LANSOPRAZOLE
     Indication: Gastrooesophageal reflux disease
     Dosage: 30 MILLIGRAM, BID
  15. MORPHINE SULFATE [Concomitant]
     Active Substance: MORPHINE SULFATE
     Indication: Pain prophylaxis
  16. SKENAN [Concomitant]
     Active Substance: MORPHINE SULFATE
     Indication: Pain prophylaxis
     Dosage: 20 MILLIGRAM, BID
  17. CREON [Concomitant]
     Active Substance: PANCRELIPASE AMYLASE\PANCRELIPASE LIPASE\PANCRELIPASE PROTEASE
     Indication: Pancreatic failure
     Dosage: 50000 INTERNATIONAL UNIT, TID
  18. ACETAMINOPHEN [Concomitant]
     Active Substance: ACETAMINOPHEN
     Indication: Pain prophylaxis
     Dosage: 1 GRAM, TID
  19. PREGABALIN [Concomitant]
     Active Substance: PREGABALIN
     Indication: Pain prophylaxis
     Dosage: 75 MILLIGRAM, BID

REACTIONS (1)
  - Anaemia [Recovered/Resolved]

NARRATIVE: CASE EVENT DATE: 20190101
